FAERS Safety Report 7071378-8 (Version None)
Quarter: 2010Q4

REPORT INFORMATION
  Report Type: 
  Country: None (occurrence: None)
  Receive Date: 20101029
  Receipt Date: 20101019
  Transmission Date: 20110411
  Serious: Yes (Hospitalization, Other)
  Sender: FDA-Public Use
  Company Number: CA-JNJFOC-20101005950

PATIENT
  Sex: Female
  Weight: 78 kg

DRUGS (6)
  1. REMICADE [Suspect]
     Indication: CROHN'S DISEASE
     Route: 042
  2. AMITRIPTYLINE HCL [Concomitant]
  3. CORTISONE [Concomitant]
  4. AVAPRO [Concomitant]
  5. TRAMADOL [Concomitant]
  6. PREDNISONE [Concomitant]

REACTIONS (1)
  - MIGRAINE [None]
